FAERS Safety Report 12944513 (Version 2)
Quarter: 2016Q4

REPORT INFORMATION
  Report Type: Spontaneous
  Country: GB (occurrence: GB)
  Receive Date: 20161116
  Receipt Date: 20161205
  Transmission Date: 20170207
  Serious: Yes (Hospitalization)
  Sender: FDA-Public Use
  Company Number: GB-TEVA-710790ACC

PATIENT
  Age: 70 Year
  Sex: Male
  Weight: 103 kg

DRUGS (7)
  1. PREDNISOLONE. [Concomitant]
     Active Substance: PREDNISOLONE
     Indication: PRODUCT USED FOR UNKNOWN INDICATION
     Dosage: 10 MILLIGRAM DAILY; EVERY DAY UNTIL SEEN BY DOCTORS
     Dates: start: 20160616
  2. DOUBLEBASE [Concomitant]
     Active Substance: ISOPROPYL MYRISTATE\PARAFFIN
     Indication: PRODUCT USED FOR UNKNOWN INDICATION
     Dosage: AS AN EMOLLIENT
     Route: 061
     Dates: start: 20160415
  3. THEICAL-D3 [Concomitant]
     Dosage: 1 DOSAGE FORMS DAILY; TO REDUCE RISK OF FRACTURE
     Dates: start: 20160616
  4. NAPROXEN. [Suspect]
     Active Substance: NAPROXEN
     Indication: PRODUCT USED FOR UNKNOWN INDICATION
     Route: 065
     Dates: start: 20161025
  5. OMEPRAZOLE. [Concomitant]
     Active Substance: OMEPRAZOLE
     Dosage: 1 DOSAGE FORMS DAILY;
     Route: 065
     Dates: start: 20160114
  6. INFLUENZA VIRUS [Concomitant]
     Active Substance: INFLUENZA VIRUS VACCINE
     Dates: start: 20161022, end: 20161022
  7. OMEPRAZOLE. [Concomitant]
     Active Substance: OMEPRAZOLE
     Indication: DYSPEPSIA
     Dosage: 1 DOSAGE FORMS DAILY;
     Dates: start: 20160614

REACTIONS (3)
  - Fatigue [Unknown]
  - Dyspnoea [Recovering/Resolving]
  - Cough [Unknown]

NARRATIVE: CASE EVENT DATE: 20161025
